FAERS Safety Report 23527631 (Version 4)
Quarter: 2024Q3

REPORT INFORMATION
  Report Type: Report from Study
  Country: BR (occurrence: BR)
  Receive Date: 20240215
  Receipt Date: 20240814
  Transmission Date: 20241016
  Serious: Yes (Hospitalization, Other)
  Sender: NOVARTIS
  Company Number: BR-002147023-NVSC2024BR030163

PATIENT
  Age: 57 Year
  Sex: Female

DRUGS (1)
  1. KISQALI [Suspect]
     Active Substance: RIBOCICLIB
     Indication: Product used for unknown indication
     Dosage: UNK
     Route: 065

REACTIONS (11)
  - Pleural effusion [Recovered/Resolved]
  - Dyspnoea [Not Recovered/Not Resolved]
  - Swelling [Unknown]
  - Fluid retention [Unknown]
  - Heart rate decreased [Recovering/Resolving]
  - Hypotension [Recovered/Resolved with Sequelae]
  - Lung neoplasm malignant [Not Recovered/Not Resolved]
  - Neuropathy peripheral [Unknown]
  - Pleural neoplasm [Unknown]
  - Movement disorder [Recovering/Resolving]
  - Disease progression [Unknown]

NARRATIVE: CASE EVENT DATE: 20240101
